FAERS Safety Report 15848308 (Version 2)
Quarter: 2020Q4

REPORT INFORMATION
  Report Type: Spontaneous
  Country: US (occurrence: US)
  Receive Date: 20190121
  Receipt Date: 20201026
  Transmission Date: 20210113
  Serious: No
  Sender: FDA-Public Use
  Company Number: US-PFIZER INC-2019025248

PATIENT
  Age: 65 Year
  Sex: Male

DRUGS (4)
  1. SOMAVERT [Suspect]
     Active Substance: PEGVISOMANT
     Dosage: 45 MG, WEEKLY (THREE 15 MG INJECTIONS PER WEEK)
  2. SOMAVERT [Suspect]
     Active Substance: PEGVISOMANT
     Dosage: 15 MG, DAILY
  3. SOMAVERT [Suspect]
     Active Substance: PEGVISOMANT
     Dosage: 45 MG, WEEKLY (15 MG EVERY MONDAY, WEDNESDAY, FRIDAY)
     Route: 058
     Dates: start: 2014
  4. SOMAVERT [Suspect]
     Active Substance: PEGVISOMANT
     Indication: ACROMEGALY
     Dosage: UNK (TITRATED)
     Dates: start: 20100101

REACTIONS (5)
  - Aspartate aminotransferase increased [Unknown]
  - Blood testosterone free decreased [Unknown]
  - Alanine aminotransferase increased [Unknown]
  - Blood urea nitrogen/creatinine ratio increased [Unknown]
  - Blood testosterone decreased [Unknown]

NARRATIVE: CASE EVENT DATE: 20180621
